FAERS Safety Report 5485654-3 (Version None)
Quarter: 2007Q4

REPORT INFORMATION
  Report Type: 
  Country: None (occurrence: None)
  Receive Date: 20071011
  Receipt Date: 20070928
  Transmission Date: 20080405
  Serious: Yes (Hospitalization)
  Sender: FDA-Public Use
  Company Number: FABR-12176

PATIENT
  Age: 40 Year
  Sex: Male
  Weight: 92 kg

DRUGS (12)
  1. FABRAZYME [Suspect]
     Indication: FABRY'S DISEASE
     Dosage: 90 MG Q2WKS IV
     Route: 042
     Dates: start: 20010101
  2. PANTOPRAZOLE SODIUM [Concomitant]
  3. BUMETANIZDE [Concomitant]
  4. PREDNISOLONE [Concomitant]
  5. CIPROFLOXACIN [Concomitant]
  6. CYCLOSPORINE [Concomitant]
  7. MYCOPHENOLATE MOFETIL [Concomitant]
  8. ASA. MF: LILLY ELI AND COMPANY [Concomitant]
  9. OXYCARBAMAZEPINE [Concomitant]
  10. PARACETAMOL [Concomitant]
  11. CODEIN [Concomitant]
  12. ROXITHROMYCIN [Concomitant]

REACTIONS (5)
  - BIOPSY KIDNEY ABNORMAL [None]
  - COMPLICATIONS OF TRANSPLANTED KIDNEY [None]
  - DRUG TOXICITY [None]
  - RENAL IMPAIRMENT [None]
  - TUBULOINTERSTITIAL NEPHRITIS [None]
